FAERS Safety Report 9639820 (Version 1)
Quarter: 2013Q4

REPORT INFORMATION
  Report Type: Spontaneous
  Country: US (occurrence: US)
  Receive Date: 20131023
  Receipt Date: 20131023
  Transmission Date: 20140711
  Serious: Yes (Other)
  Sender: FDA-Public Use
  Company Number: US-JNJFOC-20131006914

PATIENT
  Sex: 0

DRUGS (8)
  1. TETRAHYDROZOLINE HYDROCHLORIDE [Suspect]
     Indication: ACCIDENTAL EXPOSURE TO PRODUCT
     Route: 048
  2. TETRAHYDROZOLINE HYDROCHLORIDE [Suspect]
     Indication: ACCIDENTAL EXPOSURE TO PRODUCT
     Route: 048
  3. OXYMETAZOLINE HYDROCHLORIDE [Suspect]
     Route: 048
  4. OXYMETAZOLINE HYDROCHLORIDE [Suspect]
     Indication: ACCIDENTAL EXPOSURE TO PRODUCT
     Route: 048
  5. OXYMETAZOLINE HYDROCHLORIDE [Suspect]
     Route: 048
  6. OXYMETAZOLINE HYDROCHLORIDE [Suspect]
     Indication: ACCIDENTAL EXPOSURE TO PRODUCT
     Route: 048
  7. NAPHAZOLINE HYDROCHLORIDE [Suspect]
     Indication: ACCIDENTAL EXPOSURE TO PRODUCT
     Route: 048
  8. NAPHAZOLINE HYDROCHLORIDE [Suspect]
     Indication: ACCIDENTAL EXPOSURE TO PRODUCT
     Route: 048

REACTIONS (5)
  - Bradycardia [Unknown]
  - Somnolence [Unknown]
  - Hypotension [Unknown]
  - Agitation [Unknown]
  - Accidental exposure to product [Unknown]
